FAERS Safety Report 6618777-3 (Version None)
Quarter: 2010Q1

REPORT INFORMATION
  Report Type: 
  Country: None (occurrence: None)
  Receive Date: 20100305
  Receipt Date: 20100305
  Transmission Date: 20100710
  Serious: Yes (Life-Threatening, Hospitalization, Other)
  Sender: FDA-Public Use
  Company Number: None

PATIENT
  Sex: Female
  Weight: 79.5 kg

DRUGS (1)
  1. HUMIRA [Suspect]
     Indication: RHEUMATOID ARTHRITIS
     Dosage: HUMIRA 40MG/0.8 ML TWICE SUB-Q
     Route: 058

REACTIONS (1)
  - LUNG ADENOCARCINOMA [None]
